FAERS Safety Report 20829677 (Version 3)
Quarter: 2023Q1

REPORT INFORMATION
  Report Type: Spontaneous
  Country: US (occurrence: US)
  Receive Date: 20220513
  Receipt Date: 20230119
  Transmission Date: 20230418
  Serious: No
  Sender: FDA-Public Use
  Company Number: US-KARYOPHARM-2022KPT000510

PATIENT

DRUGS (21)
  1. XPOVIO [Suspect]
     Active Substance: SELINEXOR
     Indication: Plasma cell myeloma
     Dosage: 60 MG, WEEKLY
     Route: 048
     Dates: start: 20220418
  2. NITROGLYCERIN [Concomitant]
     Active Substance: NITROGLYCERIN
  3. TAMSULOSIN [Concomitant]
     Active Substance: TAMSULOSIN
  4. LACTULOSE [Concomitant]
     Active Substance: LACTULOSE
  5. GLIPIZIDE [Concomitant]
     Active Substance: GLIPIZIDE
  6. ZETIA [Concomitant]
     Active Substance: EZETIMIBE
  7. MONTELUKAST [Concomitant]
     Active Substance: MONTELUKAST SODIUM
  8. DIFLUCAN [Concomitant]
     Active Substance: FLUCONAZOLE
  9. JANUVIA [Concomitant]
     Active Substance: SITAGLIPTIN PHOSPHATE
  10. BREO ELLIPTA [Concomitant]
     Active Substance: FLUTICASONE FUROATE\VILANTEROL TRIFENATATE
  11. LOSARTAN [Concomitant]
     Active Substance: LOSARTAN
  12. GABAPENTIN [Concomitant]
     Active Substance: GABAPENTIN
  13. DEXAMETHASONE [Concomitant]
     Active Substance: DEXAMETHASONE
  14. SIMVASTATIN [Concomitant]
     Active Substance: SIMVASTATIN
  15. ACYCLOVIR SODIUM [Concomitant]
     Active Substance: ACYCLOVIR SODIUM
  16. TRAMADOL [Concomitant]
     Active Substance: TRAMADOL
  17. AZITHROMYCIN [Concomitant]
     Active Substance: AZITHROMYCIN
  18. METFORMIN HYDROCHLORIDE [Concomitant]
     Active Substance: METFORMIN HYDROCHLORIDE
  19. FERRALET [FERROUS GLUCONATE] [Concomitant]
  20. MEDROL [Concomitant]
     Active Substance: METHYLPREDNISOLONE
  21. TAMIFLU [Concomitant]
     Active Substance: OSELTAMIVIR PHOSPHATE

REACTIONS (3)
  - Nausea [Not Recovered/Not Resolved]
  - Decreased appetite [Not Recovered/Not Resolved]
  - Weight decreased [Unknown]

NARRATIVE: CASE EVENT DATE: 20220101
